FAERS Safety Report 7498562-3 (Version None)
Quarter: 2011Q2

REPORT INFORMATION
  Report Type: 
  Country: None (occurrence: None)
  Receive Date: 20110516
  Receipt Date: 20110502
  Transmission Date: 20111010
  Serious: Yes (Other)
  Sender: FDA-Public Use
  Company Number: 023537

PATIENT
  Sex: Female

DRUGS (1)
  1. VIMPAT [Suspect]
     Dosage: 100 MG BID, DOSE PER INTAKE: 2X50 MG, 100 MG BID;
     Dates: start: 20090701

REACTIONS (4)
  - TOXIC SKIN ERUPTION [None]
  - PRODUCT FORMULATION ISSUE [None]
  - DERMATOSIS [None]
  - HYPERSENSITIVITY [None]
